FAERS Safety Report 22304527 (Version 1)
Quarter: 2023Q2

REPORT INFORMATION
  Report Type: Spontaneous
  Country: US (occurrence: None)
  Receive Date: 20230509
  Receipt Date: 20230509
  Transmission Date: 20230722
  Serious: Yes (Life-Threatening, Hospitalization)
  Sender: FDA-Public Use
  Company Number: None

PATIENT
  Age: 76 Year
  Sex: Female
  Weight: 87 kg

DRUGS (1)
  1. IRON SUCROSE [Suspect]
     Active Substance: IRON SUCROSE
     Indication: Iron deficiency anaemia
     Dosage: FREQUENCY : ONCE;?
     Route: 042
     Dates: start: 20230414, end: 20230414

REACTIONS (6)
  - Anaphylactic reaction [None]
  - Infusion related reaction [None]
  - Hyperhidrosis [None]
  - Mental status changes [None]
  - Asthenia [None]
  - Peripheral swelling [None]

NARRATIVE: CASE EVENT DATE: 20230414
